FAERS Safety Report 7579166-0 (Version None)
Quarter: 2011Q2

REPORT INFORMATION
  Report Type: 
  Country: None (occurrence: None)
  Receive Date: 20110628
  Receipt Date: 20110627
  Transmission Date: 20111010
  Serious: Yes (Hospitalization)
  Sender: FDA-Public Use
  Company Number: AU-BRISTOL-MYERS SQUIBB COMPANY-15295892

PATIENT
  Age: 42 Year
  Sex: Female
  Weight: 104 kg

DRUGS (7)
  1. BLINDED: BRIVANIB ALANINATE [Suspect]
     Indication: COLORECTAL CANCER METASTATIC
     Dosage: 8FEB:16FEB10,10MAR:14MAR10,22MAR:16MAY10
     Route: 048
     Dates: start: 20100208, end: 20100516
  2. MAGMIN [Concomitant]
     Indication: MINERAL SUPPLEMENTATION
     Dates: start: 20100524
  3. DOXYCYCLINE [Concomitant]
     Indication: RASH
     Dates: start: 20100712
  4. PANTOPRAZOLE [Concomitant]
  5. CETUXIMAB [Suspect]
     Indication: COLORECTAL CANCER METASTATIC
     Dosage: 8FEB:8FEB10 360MG 15FEB:15FEB10 538MG 9MAR:10MAY10 430MG 24MAY:30AUG10 430MG
     Route: 042
     Dates: start: 20100208
  6. HYDROCORTISONE CREAM [Concomitant]
     Indication: RASH
     Dates: start: 20100222
  7. PLACEBO [Suspect]
     Indication: COLORECTAL CANCER METASTATIC
     Route: 048
     Dates: start: 20100208, end: 20100516

REACTIONS (1)
  - RENAL FAILURE [None]
